FAERS Safety Report 12196552 (Version 1)
Quarter: 2016Q1

REPORT INFORMATION
  Report Type: Spontaneous
  Country: US (occurrence: US)
  Receive Date: 20160321
  Receipt Date: 20160321
  Transmission Date: 20160526
  Serious: Yes (Other)
  Sender: FDA-Public Use
  Company Number: US-MDT-ADR-2016-00100

PATIENT
  Age: 73 Year
  Sex: Male

DRUGS (13)
  1. TOLTERODINE (SA) [Suspect]
     Active Substance: TOLTERODINE
     Dosage: 2 MG SA EVERY DAY
     Route: 048
  2. FOLIC ACID. [Suspect]
     Active Substance: FOLIC ACID
     Dosage: 1 MG/DAY
     Route: 048
  3. METHYLPHENIDATE. [Suspect]
     Active Substance: METHYLPHENIDATE
     Dosage: 5 MG BID
     Route: 048
  4. DOCUSATE [Suspect]
     Active Substance: DOCUSATE
     Dosage: 250 MG BID
     Route: 048
  5. VITAMIN C [Suspect]
     Active Substance: ASCORBIC ACID
     Route: 048
  6. HYDROCODONE 5/ACTAMINOPHEN [Suspect]
     Active Substance: ACETAMINOPHEN\HYDROCODONE
     Dosage: 325 PRN
     Route: 048
  7. CALCIUM/VITAMIN D [Suspect]
     Active Substance: CALCIUM\VITAMIN D
     Route: 048
  8. MESALAMINE. [Suspect]
     Active Substance: MESALAMINE
     Dosage: 375 MG QID
     Route: 048
  9. LIORESAL [Suspect]
     Active Substance: BACLOFEN
     Dosage: 278 MCG/DAY
     Route: 037
  10. NORTRIPTYLINE [Suspect]
     Active Substance: NORTRIPTYLINE
     Dosage: 30 QHS
     Route: 048
  11. GABAPENTIN. [Suspect]
     Active Substance: GABAPENTIN
     Dosage: 1200 MG TID
     Route: 048
  12. BACLOFEN. [Suspect]
     Active Substance: BACLOFEN
     Dosage: 10 MG
     Route: 048
  13. CITALOPRAM [Suspect]
     Active Substance: CITALOPRAM HYDROBROMIDE
     Dosage: 20 MG/DAY
     Route: 048

REACTIONS (1)
  - Drug withdrawal syndrome [Recovered/Resolved]
